FAERS Safety Report 24909131 (Version 1)
Quarter: 2025Q1

REPORT INFORMATION
  Report Type: Spontaneous
  Country: US (occurrence: US)
  Receive Date: 20250131
  Receipt Date: 20250131
  Transmission Date: 20250409
  Serious: Yes (Other)
  Sender: HIKMA
  Company Number: US-HIKMA PHARMACEUTICALS USA INC.-US-H14001-25-00657

PATIENT
  Age: 14 Year
  Sex: Female
  Weight: 57.19 kg

DRUGS (10)
  1. JAKAFI [Suspect]
     Active Substance: RUXOLITINIB
     Indication: Juvenile idiopathic arthritis
     Dosage: 5 MILLIGRAM, BID
     Route: 048
     Dates: start: 20230917
  2. JAKAFI [Suspect]
     Active Substance: RUXOLITINIB
     Dosage: 5 MILLIGRAM, BID
     Route: 048
     Dates: start: 20230917
  3. JAKAFI [Suspect]
     Active Substance: RUXOLITINIB
     Dosage: 5 MILLIGRAM, BID
     Route: 048
     Dates: start: 20230917
  4. JAKAFI [Suspect]
     Active Substance: RUXOLITINIB
     Dosage: 25 MILLIGRAM, BID
     Route: 048
     Dates: start: 202406
  5. LUPKYNIS [Suspect]
     Active Substance: VOCLOSPORIN
     Indication: Juvenile idiopathic arthritis
     Dosage: 23.7 MILLIGRAM, BID
     Route: 048
     Dates: start: 20231011
  6. MEDROL [Suspect]
     Active Substance: METHYLPREDNISOLONE
     Indication: Product used for unknown indication
     Route: 065
  7. PREDNISONE [Suspect]
     Active Substance: PREDNISONE
     Indication: Product used for unknown indication
     Route: 065
  8. CYCLOSPORINE [Concomitant]
     Active Substance: CYCLOSPORINE
     Indication: Product used for unknown indication
     Dosage: 100 MILLIGRAM, BID
     Route: 065
     Dates: start: 202310
  9. HYDROCORTISONE [Concomitant]
     Active Substance: HYDROCORTISONE
     Indication: Product used for unknown indication
     Route: 065
  10. VORICONAZOLE [Concomitant]
     Active Substance: VORICONAZOLE
     Indication: Product used for unknown indication
     Route: 065

REACTIONS (28)
  - Haemophagocytic lymphohistiocytosis [Unknown]
  - Hallucination [Unknown]
  - Still^s disease [Unknown]
  - Hypersensitivity [Unknown]
  - Stress [Unknown]
  - Depression [Unknown]
  - Diarrhoea [Unknown]
  - Condition aggravated [Not Recovered/Not Resolved]
  - Dizziness [Unknown]
  - Constipation [Unknown]
  - Pollakiuria [Unknown]
  - Fatigue [Unknown]
  - Dyspnoea exertional [Unknown]
  - Emotional disorder [Not Recovered/Not Resolved]
  - Nausea [Unknown]
  - Vomiting [Unknown]
  - Sinus disorder [Unknown]
  - Mental status changes [Unknown]
  - Hospitalisation [Unknown]
  - Rash [Not Recovered/Not Resolved]
  - Urticaria [Unknown]
  - Arthritis [Not Recovered/Not Resolved]
  - Antiphospholipid antibodies positive [Unknown]
  - Pleural effusion [Unknown]
  - Lung opacity [Unknown]
  - Pyrexia [Not Recovered/Not Resolved]
  - Feeling abnormal [Not Recovered/Not Resolved]
  - Bone pain [Not Recovered/Not Resolved]

NARRATIVE: CASE EVENT DATE: 20230301
